FAERS Safety Report 18402275 (Version 4)
Quarter: 2020Q4

REPORT INFORMATION
  Report Type: Spontaneous
  Country: NG (occurrence: NG)
  Receive Date: 20201019
  Receipt Date: 20201214
  Transmission Date: 20210114
  Serious: Yes (Death)
  Sender: FDA-Public Use
  Company Number: NG-PFIZER INC-2020401937

PATIENT
  Age: 68 Year
  Sex: Female
  Weight: 78 kg

DRUGS (14)
  1. PREDNISOLONE. [Concomitant]
     Active Substance: PREDNISOLONE
     Indication: COVID-19
     Dosage: 30 MG, DAILY
     Dates: start: 20200930, end: 20201009
  2. RIBAVIRIN. [Concomitant]
     Active Substance: RIBAVIRIN
     Indication: COVID-19
     Dosage: 1.6 G, DAILY
     Route: 042
     Dates: start: 20201005, end: 20201010
  3. TYGACIL [Suspect]
     Active Substance: TIGECYCLINE
     Indication: COVID-19
     Dosage: 50 MG, 2X/DAY (12HOURLY)
     Route: 042
     Dates: start: 20201008, end: 20201010
  4. TYGACIL [Suspect]
     Active Substance: TIGECYCLINE
     Indication: BACTERIAL INFECTION
  5. HYDROCORTISONE. [Concomitant]
     Active Substance: HYDROCORTISONE
     Indication: SHOCK
     Dosage: 200 MG, AS NEEDED
     Route: 042
     Dates: start: 20201008, end: 20201010
  6. OMEPRAZOLE. [Concomitant]
     Active Substance: OMEPRAZOLE
     Indication: DYSPEPSIA
     Dosage: 40 MG, 2X/DAY
     Route: 042
     Dates: start: 20201008, end: 20201010
  7. HYDROXYCHLOROQUINE [Concomitant]
     Active Substance: HYDROXYCHLOROQUINE
     Indication: COVID-19
     Dosage: 200 MG, 2X/DAY
     Dates: start: 20200921, end: 20201009
  8. SOLUBLE INSULIN [Concomitant]
     Indication: HYPERGLYCAEMIA
     Dosage: 10 IU, 3X/DAY
     Route: 058
     Dates: start: 20201008, end: 20201010
  9. METRONIDAZOLE HCL [Concomitant]
     Active Substance: METRONIDAZOLE HYDROCHLORIDE
     Indication: SEPSIS
     Dosage: 500 MG, 3X/DAY
     Route: 042
     Dates: start: 20201006, end: 20201010
  10. ENOXAPARIN [Concomitant]
     Active Substance: ENOXAPARIN
     Indication: THROMBOSIS PROPHYLAXIS
     Dosage: 40 MG, 2X/DAY
     Route: 058
     Dates: start: 20200921, end: 20201010
  11. MEROPENEM. [Concomitant]
     Active Substance: MEROPENEM
     Indication: COVID-19
  12. FUROSEMIDE. [Concomitant]
     Active Substance: FUROSEMIDE
     Indication: FLUID RETENTION
     Dosage: 40 MG, DAILY
     Route: 042
     Dates: start: 20201009, end: 20201010
  13. MEROPENEM. [Concomitant]
     Active Substance: MEROPENEM
     Indication: SEPSIS
     Dosage: 1 G, 3X/DAY (8-HOURLY)
     Route: 042
     Dates: start: 20201002, end: 20201010
  14. PARACETAMOL [Concomitant]
     Active Substance: ACETAMINOPHEN
     Indication: PYREXIA
     Dosage: 600 MG, AS NEEDED
     Route: 042
     Dates: start: 20201008, end: 20201010

REACTIONS (3)
  - Hypotension [Fatal]
  - Multiple organ dysfunction syndrome [Fatal]
  - Blood pressure fluctuation [Fatal]

NARRATIVE: CASE EVENT DATE: 20201008
